FAERS Safety Report 5182757-8 (Version None)
Quarter: 2006Q4

REPORT INFORMATION
  Report Type: 
  Country: None (occurrence: None)
  Receive Date: 20061220
  Receipt Date: 20051111
  Transmission Date: 20070319
  Serious: No
  Sender: FDA-Public Use
  Company Number: US-GLAXOSMITHKLINE-A0581916A

PATIENT
  Age: 61 Year
  Sex: Male

DRUGS (1)
  1. EQUATE NTS 14MG [Suspect]
     Dates: start: 20051110, end: 20051110

REACTIONS (3)
  - ASTHENIA [None]
  - HEART RATE INCREASED [None]
  - PARAESTHESIA [None]
